FAERS Safety Report 9804329 (Version 1)
Quarter: 2014Q1

REPORT INFORMATION
  Report Type: Spontaneous
  Country: BR (occurrence: None)
  Receive Date: 20140106
  Receipt Date: 20140106
  Transmission Date: 20141002
  Serious: Yes (Hospitalization)
  Sender: FDA-Public Use
  Company Number: COL_14884_2013

PATIENT
  Age: 40 Year
  Sex: Male

DRUGS (1)
  1. PLAX 2 IN 1 [Suspect]
     Indication: PRODUCT USED FOR UNKNOWN INDICATION
     Dosage: (20 ML/ ONCE/ ORAL)
     Route: 048
     Dates: start: 20131220

REACTIONS (2)
  - Hypersensitivity [None]
  - Laryngeal oedema [None]
